FAERS Safety Report 5824597-X (Version None)
Quarter: 2008Q3

REPORT INFORMATION
  Report Type: 
  Country: None (occurrence: None)
  Receive Date: 20080728
  Receipt Date: 20080721
  Transmission Date: 20090109
  Serious: Yes (Hospitalization)
  Sender: FDA-Public Use
  Company Number: RO-KINGPHARMUSA00001-K200800861

PATIENT

DRUGS (6)
  1. SEPTRA [Suspect]
     Indication: DERMATOMYOSITIS
     Dosage: UNK, UNK
  2. SEPTRA [Suspect]
     Indication: TONSILLITIS
  3. METHOTREXATE [Suspect]
     Indication: DERMATOMYOSITIS
     Dosage: UNK, UNK
  4. METHOTREXATE [Suspect]
     Indication: TONSILLITIS
  5. NON-STEROIDAL DRUGS [Suspect]
     Indication: DERMATOMYOSITIS
     Dosage: UNK, UNK
  6. NON-STEROIDAL DRUGS [Suspect]
     Indication: TONSILLITIS

REACTIONS (1)
  - ACUTE HEPATIC FAILURE [None]
